FAERS Safety Report 7267287-1 (Version None)
Quarter: 2011Q1

REPORT INFORMATION
  Report Type: 
  Country: None (occurrence: None)
  Receive Date: 20110121
  Receipt Date: 20110110
  Transmission Date: 20110831
  Serious: Yes (Other)
  Sender: FDA-Public Use
  Company Number: WAES 1101USA00834

PATIENT
  Age: 85 Year
  Sex: Female

DRUGS (1)
  1. FOSAMAX PLUS D [Suspect]
     Indication: OSTEOPOROSIS
     Dosage: 70 MG/WKY, PO
     Route: 048
     Dates: start: 20091203

REACTIONS (2)
  - HUMERUS FRACTURE [None]
  - RIB FRACTURE [None]
